FAERS Safety Report 5495581-3 (Version None)
Quarter: 2007Q4

REPORT INFORMATION
  Report Type: 
  Country: None (occurrence: None)
  Receive Date: 20071025
  Receipt Date: 20071018
  Transmission Date: 20080405
  Serious: Yes (Other)
  Sender: FDA-Public Use
  Company Number: PHNR2007AU01946

PATIENT
  Sex: Male

DRUGS (2)
  1. EXJADE [Suspect]
     Indication: MYELODYSPLASTIC SYNDROME
     Dosage: 3 TABLETS, TID,  30MINS BEFORE FOOD
     Route: 048
     Dates: start: 20070501
  2. EXJADE [Suspect]
     Dosage: 4 TABLETS, TID, 30 MINS BEFORE FOOD
     Route: 048

REACTIONS (3)
  - BLOOD IRON INCREASED [None]
  - LEUKAEMIA [None]
  - TREATMENT NONCOMPLIANCE [None]
